FAERS Safety Report 25603229 (Version 3)
Quarter: 2025Q3

REPORT INFORMATION
  Report Type: Spontaneous
  Country: US (occurrence: US)
  Receive Date: 20250724
  Receipt Date: 20250822
  Transmission Date: 20251020
  Serious: Yes (Other)
  Sender: AMERICAN REGENT
  Company Number: US-AMERICAN REGENT INC-2025002841

PATIENT
  Age: 4 Decade
  Sex: Female

DRUGS (4)
  1. EPINEPHRINE [Suspect]
     Active Substance: EPINEPHRINE
     Indication: Liposuction
     Route: 065
     Dates: start: 20250711, end: 20250711
  2. EPINEPHRINE [Suspect]
     Active Substance: EPINEPHRINE
     Route: 065
     Dates: start: 20250711, end: 20250711
  3. LIDOCAINE HYDROCHLORIDE [Suspect]
     Active Substance: LIDOCAINE HYDROCHLORIDE
     Indication: Liposuction
     Route: 065
     Dates: start: 20250711, end: 20250711
  4. SODIUM BICARBONATE [Concomitant]
     Active Substance: SODIUM BICARBONATE
     Indication: Liposuction
     Route: 065
     Dates: start: 20250711, end: 20250711

REACTIONS (6)
  - Procedural haemorrhage [Recovered/Resolved]
  - Contusion [Not Recovered/Not Resolved]
  - Scar [Unknown]
  - Product use in unapproved indication [Unknown]
  - Product use issue [Unknown]
  - Product quality issue [Unknown]

NARRATIVE: CASE EVENT DATE: 20250711
